FAERS Safety Report 5767999-2 (Version None)
Quarter: 2008Q2

REPORT INFORMATION
  Report Type: 
  Country: None (occurrence: None)
  Receive Date: 20080601
  Receipt Date: 20080310
  Transmission Date: 20081010
  Serious: Yes (Life-Threatening)
  Sender: FDA-Public Use
  Company Number: US200801003196

PATIENT
  Age: 64 Year
  Sex: Female
  Weight: 73.5 kg

DRUGS (14)
  1. BYETTA [Suspect]
     Indication: TYPE 2 DIABETES MELLITUS
     Dosage: 5 UG ; 5 UG, 2/D, SUBCUTANEOUS ; 5 UG
     Route: 058
     Dates: start: 20070820, end: 20070831
  2. BYETTA [Suspect]
     Indication: TYPE 2 DIABETES MELLITUS
     Dosage: 5 UG ; 5 UG, 2/D, SUBCUTANEOUS ; 5 UG
     Route: 058
     Dates: start: 20071008, end: 20071008
  3. METFORMIN /00082702/ (METFORMIN HYDROCHLORIDE) [Concomitant]
  4. ANTI-DIABETICS [Concomitant]
  5. ATACAND [Concomitant]
  6. BENICAR HCT (HYDROCHLOROTHIAZIDE, OLMESARTAN MEDOXOMIL) [Concomitant]
  7. FEMARA [Concomitant]
  8. AMARYL [Concomitant]
  9. MIRAPEX [Concomitant]
  10. NEXIUM [Concomitant]
  11. OMACOR [Concomitant]
  12. SERTRALINE HYDROCHLORIDE [Concomitant]
  13. SIMVASTATIN [Concomitant]
  14. WARFARIN SODIUM [Concomitant]

REACTIONS (11)
  - DIZZINESS [None]
  - FEELING JITTERY [None]
  - GENERALISED ERYTHEMA [None]
  - INJECTION SITE PAIN [None]
  - NAUSEA [None]
  - OEDEMA PERIPHERAL [None]
  - PALPITATIONS [None]
  - PHARYNGEAL OEDEMA [None]
  - PRURITUS GENERALISED [None]
  - RASH PRURITIC [None]
  - VISUAL DISTURBANCE [None]
